FAERS Safety Report 16451586 (Version 1)
Quarter: 2019Q2

REPORT INFORMATION
  Report Type: Spontaneous
  Country: IT (occurrence: IT)
  Receive Date: 20190619
  Receipt Date: 20190619
  Transmission Date: 20190711
  Serious: Yes (Other)
  Sender: FDA-Public Use
  Company Number: IT-TEVA-2019-IT-1065122

PATIENT
  Age: 9 Year
  Sex: Male
  Weight: 37 kg

DRUGS (18)
  1. UROMITEXAN [Suspect]
     Active Substance: MESNA
     Dosage: 492MG PER CYCLICAL
     Route: 042
     Dates: start: 20181201, end: 20181202
  2. ENDOXAN BAXTER [Suspect]
     Active Substance: CYCLOPHOSPHAMIDE
     Indication: ACUTE LYMPHOCYTIC LEUKAEMIA
     Dosage: 234 MG PER CYCLICAL
     Route: 042
     Dates: start: 20181130, end: 20181130
  3. ENDOXAN BAXTER [Suspect]
     Active Substance: CYCLOPHOSPHAMIDE
     Dosage: 438MG PER CYCLICAL
     Route: 042
     Dates: start: 20181201, end: 20181202
  4. URBASON [Concomitant]
     Active Substance: METHYLPREDNISOLONE
     Dosage: 10MG
     Route: 037
     Dates: start: 20181115, end: 20181129
  5. METHOTREXATE. [Suspect]
     Active Substance: METHOTREXATE
     Indication: ACUTE LYMPHOCYTIC LEUKAEMIA
     Dosage: 5850MG PER CYCLICAL
     Route: 042
     Dates: start: 20181115, end: 20181221
  6. METHOTREXATE. [Suspect]
     Active Substance: METHOTREXATE
     Dosage: 12MG PER CYCLICAL
     Route: 037
     Dates: start: 20181115, end: 20181129
  7. UROMITEXAN [Suspect]
     Active Substance: MESNA
     Indication: ACUTE LYMPHOCYTIC LEUKAEMIA
     Dosage: 82MG PER CYCLICAL
     Route: 042
     Dates: start: 20181130, end: 20181130
  8. DILATREND [Concomitant]
     Active Substance: CARVEDILOL
     Dosage: 3.12MG
     Route: 048
  9. UROMITEXAN [Suspect]
     Active Substance: MESNA
     Dosage: 164 MG PER CYCLICAL
     Route: 042
     Dates: start: 20181203, end: 20181203
  10. FLEBOCORTID RICHTER [Concomitant]
     Indication: PREMEDICATION
     Dosage: 150MG
     Route: 042
  11. TRIMETON [Concomitant]
     Active Substance: CHLORPHENIRAMINE MALEATE
     Indication: PREMEDICATION
     Dosage: 7.5MG
     Route: 042
  12. ANTRA [Concomitant]
     Active Substance: OMEPRAZOLE
     Dosage: 40MG
     Route: 042
  13. MYCOSTATIN [Concomitant]
     Active Substance: NYSTATIN
     Dosage: 15ML
     Route: 048
  14. VINCRISTINE [Suspect]
     Active Substance: VINCRISTINE
     Indication: ACUTE LYMPHOCYTIC LEUKAEMIA
     Dosage: 1.75MG PER CYCLICAL
     Route: 042
     Dates: start: 20181129, end: 20181204
  15. ONCASPAR [Suspect]
     Active Substance: PEGASPARGASE
     Indication: ACUTE LYMPHOCYTIC LEUKAEMIA
     Dosage: 2935 KU PER CYCLICAL
     Route: 042
     Dates: start: 20181204, end: 20181226
  16. IG VENA [Suspect]
     Active Substance: HUMAN IMMUNOGLOBULIN G
     Indication: BLOOD IMMUNOGLOBULIN G DECREASED
     Dosage: 15MG
     Route: 042
     Dates: start: 20181207, end: 20181207
  17. ANTITHROMBIN III HUMAN [Concomitant]
     Active Substance: ANTITHROMBIN III HUMAN
     Dosage: 500 IU
     Route: 042
  18. BACTRIM [Concomitant]
     Active Substance: SULFAMETHOXAZOLE\TRIMETHOPRIM
     Dosage: 2 DF
     Route: 048

REACTIONS (2)
  - Abdominal pain [Unknown]
  - Diarrhoea [Unknown]

NARRATIVE: CASE EVENT DATE: 20181207
